FAERS Safety Report 7913517-X (Version None)
Quarter: 2011Q4

REPORT INFORMATION
  Report Type: 
  Country: None (occurrence: None)
  Receive Date: 20111110
  Receipt Date: 20111028
  Transmission Date: 20120403
  Serious: Yes (Other)
  Sender: FDA-Public Use
  Company Number: GRT 2011-14956

PATIENT
  Sex: Male

DRUGS (1)
  1. LIDOCAINE [Suspect]

REACTIONS (1)
  - TACHYCARDIA [None]
